FAERS Safety Report 6888296-8 (Version None)
Quarter: 2010Q3

REPORT INFORMATION
  Report Type: 
  Country: None (occurrence: None)
  Receive Date: 20100730
  Receipt Date: 20100727
  Transmission Date: 20110219
  Serious: Yes (Life-Threatening)
  Sender: FDA-Public Use
  Company Number: JP-BRACCO-003657

PATIENT
  Sex: Female

DRUGS (3)
  1. ROCURONIUM BROMIDE [Suspect]
     Indication: HYPOTONIA
     Route: 041
     Dates: start: 20100604, end: 20100609
  2. IOPAMIDOL [Suspect]
     Indication: COMPUTERISED TOMOGRAM ABDOMEN
     Route: 042
     Dates: start: 20100604, end: 20100604
  3. IOPAMIDOL [Suspect]
     Indication: ACUTE ABDOMEN
     Route: 042
     Dates: start: 20100604, end: 20100604

REACTIONS (3)
  - CARDIAC FAILURE ACUTE [None]
  - COMPUTERISED TOMOGRAM ABNORMAL [None]
  - ILEUS PARALYTIC [None]
